FAERS Safety Report 5698136-0 (Version None)
Quarter: 2008Q2

REPORT INFORMATION
  Report Type: 
  Country: None (occurrence: None)
  Receive Date: 20080403
  Receipt Date: 20080321
  Transmission Date: 20081010
  Serious: Yes (Death, Life-Threatening)
  Sender: FDA-Public Use
  Company Number: 000331

PATIENT
  Age: 21 Year
  Sex: Female

DRUGS (1)
  1. BUSULFEX [Suspect]
     Indication: STEM CELL TRANSPLANT
     Dates: start: 20070422, end: 20070423

REACTIONS (5)
  - CANDIDA SEPSIS [None]
  - CARDIOGENIC SHOCK [None]
  - PNEUMONIA [None]
  - STAPHYLOCOCCAL SEPSIS [None]
  - STOMATITIS [None]
